FAERS Safety Report 12888629 (Version 1)
Quarter: 2016Q4

REPORT INFORMATION
  Report Type: Spontaneous
  Country: BR (occurrence: BR)
  Receive Date: 20161027
  Receipt Date: 20161027
  Transmission Date: 20170207
  Serious: Yes (Other)
  Sender: FDA-Public Use
  Company Number: PHHY2016BR146823

PATIENT
  Age: 71 Year
  Sex: Male

DRUGS (2)
  1. COSENTYX [Suspect]
     Active Substance: SECUKINUMAB
     Indication: PRODUCT USED FOR UNKNOWN INDICATION
     Dosage: 4 WEEKLY DOSES, QW
     Route: 065
     Dates: start: 20160801
  2. COSENTYX [Suspect]
     Active Substance: SECUKINUMAB
     Dosage: 2 MORE MAINTENANCE DOSES EVERY 28 DAYS, QMO
     Route: 065

REACTIONS (3)
  - Ankylosing spondylitis [Unknown]
  - Psoriasis [Unknown]
  - Psoriatic arthropathy [Unknown]
